FAERS Safety Report 19608291 (Version 10)
Quarter: 2024Q4

REPORT INFORMATION
  Report Type: Spontaneous
  Country: US (occurrence: US)
  Receive Date: 20210726
  Receipt Date: 20241114
  Transmission Date: 20250114
  Serious: Yes (Other)
  Sender: BAYER HEALTHCARE PHARMACEUTICALS INC.
  Company Number: US-BAYER-2021-178964

PATIENT
  Age: 36 Year
  Sex: Female
  Weight: 61 kg

DRUGS (5)
  1. MIRENA [Suspect]
     Active Substance: LEVONORGESTREL
     Indication: Contraception
     Dosage: 20?G/DAY
     Route: 015
     Dates: start: 20190108, end: 20200226
  2. SPIRONOLACTONE [Concomitant]
     Active Substance: SPIRONOLACTONE
  3. TRETINOIN [Concomitant]
     Active Substance: TRETINOIN
     Indication: Acne
  4. SULFACETAMIDE [Concomitant]
     Active Substance: SULFACETAMIDE
     Indication: Acne
  5. MEDROXYPROGESTERONE [Concomitant]
     Active Substance: MEDROXYPROGESTERONE

REACTIONS (31)
  - Suicidal ideation [Recovered/Resolved]
  - Appendicitis [None]
  - Genital haemorrhage [None]
  - Abdominal pain lower [Not Recovered/Not Resolved]
  - Vaginal haemorrhage [Recovered/Resolved]
  - Premenstrual pain [Recovered/Resolved]
  - Medical device discomfort [None]
  - Abdominal distension [Not Recovered/Not Resolved]
  - Pelvic pain [None]
  - Chills [None]
  - Vomiting [None]
  - Incision site discomfort [None]
  - Serositis [None]
  - Dysmenorrhoea [None]
  - Constipation [None]
  - Procedural pain [None]
  - Arthralgia [Recovering/Resolving]
  - Acne cystic [None]
  - Hordeolum [None]
  - Iron deficiency anaemia [None]
  - Rhinitis allergic [None]
  - Mixed anxiety and depressive disorder [None]
  - Acne [None]
  - Ingrown hair [None]
  - Folliculitis [None]
  - Hyperhidrosis [None]
  - Arthralgia [None]
  - Ovarian cyst [None]
  - Uterine leiomyoma [None]
  - Anaemia [None]
  - Dermatitis [None]

NARRATIVE: CASE EVENT DATE: 20190101
